FAERS Safety Report 6388643-X (Version None)
Quarter: 2009Q4

REPORT INFORMATION
  Report Type: 
  Country: None (occurrence: None)
  Receive Date: 20091005
  Receipt Date: 20090925
  Transmission Date: 20100525
  Serious: Yes (Hospitalization)
  Sender: FDA-Public Use
  Company Number: JP-ABBOTT-09P-087-0594830-00

PATIENT
  Age: 82 Year
  Sex: Male

DRUGS (4)
  1. LEUPLIN SR FOR INJECTION 11.25 MG [Suspect]
     Indication: PROSTATE CANCER STAGE II
     Dates: start: 20070226, end: 20080220
  2. CASODEX [Concomitant]
     Indication: PROSTATE CANCER STAGE III
     Route: 048
     Dates: start: 20070130, end: 20080319
  3. FLIVAS [Concomitant]
     Indication: BENIGN PROSTATIC HYPERPLASIA
     Route: 048
     Dates: start: 20070215, end: 20080220
  4. FLIVAS [Concomitant]
     Route: 048
     Dates: start: 20080221, end: 20080319

REACTIONS (1)
  - CEREBRAL INFARCTION [None]
